FAERS Safety Report 5444271-1 (Version None)
Quarter: 2007Q3

REPORT INFORMATION
  Report Type: 
  Country: None (occurrence: None)
  Receive Date: 20070831
  Receipt Date: 20070816
  Transmission Date: 20080115
  Serious: Yes (Life-Threatening, Hospitalization)
  Sender: FDA-Public Use
  Company Number: TPG2007A00523

PATIENT
  Age: 70 Year
  Sex: Female

DRUGS (5)
  1. PIOGLITAZONE HCL [Suspect]
     Indication: TYPE 2 DIABETES MELLITUS
     Dosage: PER ORAL
     Route: 048
     Dates: start: 20070501, end: 20070701
  2. TAMOXIFEN CITRATE [Concomitant]
  3. OPIPRAMOL (OPIPRAMOL) [Concomitant]
  4. SILYMARIN (SILYBUM MARIANUM) [Concomitant]
  5. OXAZEPAM [Concomitant]

REACTIONS (24)
  - ACUTE HEPATIC FAILURE [None]
  - ASTHENIA [None]
  - BASE EXCESS INCREASED [None]
  - BUNDLE BRANCH BLOCK [None]
  - CARDIAC FAILURE [None]
  - CONDITION AGGRAVATED [None]
  - CONFUSIONAL STATE [None]
  - DIABETES MELLITUS [None]
  - GENERAL PHYSICAL HEALTH DETERIORATION [None]
  - HYPERKALAEMIA [None]
  - HYPONATRAEMIA [None]
  - LACTIC ACIDOSIS [None]
  - LACUNAR INFARCTION [None]
  - LEUKOCYTOSIS [None]
  - MENTAL DISORDER DUE TO A GENERAL MEDICAL CONDITION [None]
  - METABOLIC ACIDOSIS [None]
  - MULTI-ORGAN FAILURE [None]
  - PLEURAL EFFUSION [None]
  - RENAL FAILURE ACUTE [None]
  - SINUS TACHYCARDIA [None]
  - THROMBOCYTOPENIA [None]
  - TUMOUR MARKER INCREASED [None]
  - URINARY TRACT INFECTION [None]
  - UTERINE LEIOMYOMA [None]
